FAERS Safety Report 10719996 (Version 3)
Quarter: 2015Q1

REPORT INFORMATION
  Report Type: Spontaneous
  Country: US (occurrence: US)
  Receive Date: 20150119
  Receipt Date: 20150326
  Transmission Date: 20150721
  Serious: Yes (Hospitalization)
  Sender: FDA-Public Use
  Company Number: US-UNITED THERAPEUTICS-UNT-2014-011364

PATIENT
  Age: 76 Year
  Sex: Female
  Weight: 58.5 kg

DRUGS (6)
  1. WARFARIN [Concomitant]
     Active Substance: WARFARIN
     Indication: PRODUCT USED FOR UNKNOWN INDICATION
  2. REMODULIN [Suspect]
     Active Substance: TREPROSTINIL
     Indication: PULMONARY HYPERTENSION
     Dosage: 0.091 ?G/KG, CONTINUING
     Route: 041
     Dates: start: 20110122
  3. REMODULIN [Suspect]
     Active Substance: TREPROSTINIL
     Dosage: 0.120 ?G/KG, CONTINUING
     Route: 041
  4. REMODULIN [Suspect]
     Active Substance: TREPROSTINIL
     Dosage: 0.123 ?G/KG, CONTINUING
     Route: 041
  5. REVATIO [Concomitant]
     Active Substance: SILDENAFIL CITRATE
     Indication: PRODUCT USED FOR UNKNOWN INDICATION
  6. REMODULIN [Suspect]
     Active Substance: TREPROSTINIL
     Dosage: 0.123 ?G/KG, CONTINUING
     Route: 041
     Dates: start: 20110215

REACTIONS (6)
  - Injection site erythema [Unknown]
  - Bacteraemia [Unknown]
  - Drug dose omission [Unknown]
  - Device dislocation [Unknown]
  - Device issue [Unknown]
  - Device related infection [Unknown]

NARRATIVE: CASE EVENT DATE: 2014
